FAERS Safety Report 6857114-6 (Version None)
Quarter: 2010Q3

REPORT INFORMATION
  Report Type: 
  Country: None (occurrence: None)
  Receive Date: 20100719
  Receipt Date: 20100709
  Transmission Date: 20110219
  Serious: Yes (Other)
  Sender: FDA-Public Use
  Company Number: B0664308A

PATIENT
  Age: 63 Year
  Sex: Female

DRUGS (8)
  1. CEFUROXIME [Suspect]
     Indication: OROPHARYNGEAL PAIN
     Dosage: 750MG PER DAY
     Route: 048
     Dates: start: 20100629, end: 20100702
  2. PANALDINE [Concomitant]
     Route: 048
  3. ASPIRIN [Concomitant]
     Route: 048
  4. AMLODIN [Concomitant]
     Route: 048
  5. OMEPRAZOLE [Concomitant]
     Route: 048
  6. CALFINA [Concomitant]
     Route: 048
  7. BIOFERMIN [Concomitant]
     Route: 048
  8. UNKNOWN DRUG [Concomitant]
     Route: 048

REACTIONS (1)
  - SUDDEN HEARING LOSS [None]
